FAERS Safety Report 14133073 (Version 3)
Quarter: 2017Q4

REPORT INFORMATION
  Report Type: Report from Study
  Country: US (occurrence: US)
  Receive Date: 20171026
  Receipt Date: 20171116
  Transmission Date: 20180321
  Serious: Yes (Hospitalization)
  Sender: FDA-Public Use
  Company Number: US-ACTELION-A-US2017-158626

PATIENT
  Age: 78 Year
  Sex: Female
  Weight: 79.82 kg

DRUGS (4)
  1. OPSUMIT [Suspect]
     Active Substance: MACITENTAN
     Indication: PULMONARY HYPERTENSION
     Dosage: 10 MG, QD
     Route: 048
  2. UPTRAVI [Suspect]
     Active Substance: SELEXIPAG
     Dosage: 600 MCG, BID
     Route: 048
     Dates: start: 20170914
  3. ADCIRCA [Concomitant]
     Active Substance: TADALAFIL
  4. UPTRAVI [Suspect]
     Active Substance: SELEXIPAG
     Indication: PULMONARY HYPERTENSION
     Dosage: 400 MCG, BID
     Route: 048

REACTIONS (22)
  - Constipation [Unknown]
  - Pain in jaw [Unknown]
  - Asthenia [Unknown]
  - Headache [Unknown]
  - Dyspnoea [Unknown]
  - Fluid overload [Unknown]
  - Dysstasia [Unknown]
  - Condition aggravated [Unknown]
  - Cholelithiasis [Unknown]
  - Abdominal distension [Not Recovered/Not Resolved]
  - Muscular weakness [Unknown]
  - Back pain [Unknown]
  - Peripheral swelling [Not Recovered/Not Resolved]
  - Cardiac failure [Unknown]
  - Swelling [Unknown]
  - Therapy cessation [Unknown]
  - Abdominal discomfort [Unknown]
  - Loss of consciousness [Unknown]
  - Pruritus [Unknown]
  - Weight increased [Unknown]
  - Dysphagia [Unknown]
  - Muscle spasms [Unknown]

NARRATIVE: CASE EVENT DATE: 20171009
